FAERS Safety Report 21558153 (Version 3)
Quarter: 2022Q4

REPORT INFORMATION
  Report Type: Report from Study
  Country: US (occurrence: US)
  Receive Date: 20221107
  Receipt Date: 20221229
  Transmission Date: 20230112
  Serious: No
  Sender: FDA-Public Use
  Company Number: US-002147023-NVSC2022US248997

PATIENT
  Sex: Female

DRUGS (2)
  1. COSENTYX [Suspect]
     Active Substance: SECUKINUMAB
     Indication: Psoriasis
     Dosage: 300 MG, QW, (EVERY WEEK, 5 WEEKS)
     Route: 058
     Dates: start: 20221101
  2. COSENTYX [Suspect]
     Active Substance: SECUKINUMAB
     Dosage: 300 MG, QMO, (EVERY 4 WEEKS)
     Route: 058

REACTIONS (6)
  - Psoriasis [Unknown]
  - Pruritus [Unknown]
  - Hyperhidrosis [Unknown]
  - Erythema [Unknown]
  - Peripheral swelling [Unknown]
  - Scab [Unknown]
